FAERS Safety Report 12245680 (Version 1)
Quarter: 2016Q2

REPORT INFORMATION
  Report Type: Spontaneous
  Country: DE (occurrence: DE)
  Receive Date: 20160407
  Receipt Date: 20160407
  Transmission Date: 20160815
  Serious: Yes (Hospitalization, Other)
  Sender: FDA-Public Use
  Company Number: DE-GLAXOSMITHKLINE-DE2016GSK045955

PATIENT
  Age: 0 Day
  Sex: Female
  Weight: 3.25 kg

DRUGS (6)
  1. VENLAFAXINE [Suspect]
     Active Substance: VENLAFAXINE HYDROCHLORIDE
     Indication: DEPRESSION
     Dosage: 300 MG, QD
     Route: 064
     Dates: start: 20141109
  2. FSME-IMMUN [Concomitant]
     Indication: PROPHYLAXIS
     Dosage: UNK
     Route: 064
     Dates: start: 20150520, end: 20150611
  3. CYTOTEC [Concomitant]
     Active Substance: MISOPROSTOL
     Indication: LABOUR INDUCTION
     Dosage: UNK
     Route: 064
     Dates: start: 20150720, end: 20150720
  4. CEFUROXIME. [Concomitant]
     Active Substance: CEFUROXIME
     Indication: INFECTION PROPHYLAXIS
     Dosage: 1.5 G, TID
     Route: 064
     Dates: start: 20150720, end: 20150720
  5. LAMOTRIGINE. [Suspect]
     Active Substance: LAMOTRIGINE
     Indication: BIPOLAR DISORDER
     Dosage: 200 MG, QD
     Route: 064
     Dates: start: 20141109
  6. L-THYROX [Concomitant]
     Active Substance: LEVOTHYROXINE SODIUM
     Indication: HYPOTHYROIDISM
     Dosage: 50 UNK, QD
     Route: 064

REACTIONS (3)
  - Foetal exposure during pregnancy [Unknown]
  - Respiratory disorder neonatal [Recovered/Resolved]
  - Selective eating disorder [Recovered/Resolved]

NARRATIVE: CASE EVENT DATE: 20150721
